FAERS Safety Report 6903946-5 (Version None)
Quarter: 2010Q3

REPORT INFORMATION
  Report Type: 
  Country: None (occurrence: None)
  Receive Date: 20100804
  Receipt Date: 20090219
  Transmission Date: 20110219
  Serious: No
  Sender: FDA-Public Use
  Company Number: US-PFIZER INC-2009173438

PATIENT
  Sex: Male
  Weight: 86.2 kg

DRUGS (8)
  1. LYRICA [Suspect]
     Indication: PAIN IN EXTREMITY
     Dosage: 75 MG, 1X/DAY
     Dates: start: 20090101, end: 20090201
  2. HERBAL NOS/MINERALS NOS [Concomitant]
     Dosage: UNK
  3. ANTIHYPERTENSIVES [Concomitant]
     Dosage: UNK
  4. HYTRIN [Concomitant]
     Dosage: UNK
  5. VITAMIN TAB [Concomitant]
     Dosage: UNK
  6. CHONDROITIN/GLUCOSAMINE [Concomitant]
     Dosage: UNK
  7. VITAMIN D [Concomitant]
     Dosage: UNK
  8. POTASSIUM [Concomitant]
     Dosage: UNK

REACTIONS (7)
  - BLISTER [None]
  - BLOOD CHOLESTEROL INCREASED [None]
  - CONFUSIONAL STATE [None]
  - INCREASED TENDENCY TO BRUISE [None]
  - MUSCULAR WEAKNESS [None]
  - VISION BLURRED [None]
  - WEIGHT INCREASED [None]
